FAERS Safety Report 11519710 (Version 1)
Quarter: 2015Q3

REPORT INFORMATION
  Report Type: Spontaneous
  Country: US (occurrence: None)
  Receive Date: 20150916
  Receipt Date: 20150916
  Transmission Date: 20151125
  Serious: Yes (Other)
  Sender: FDA-Public Use
  Company Number: None

PATIENT
  Age: 38 Year
  Sex: Female

DRUGS (1)
  1. SYLATRON [Suspect]
     Active Substance: PEGINTERFERON ALFA-2B
     Indication: NEOPLASM MALIGNANT
     Route: 058
     Dates: start: 20150714, end: 20150915

REACTIONS (2)
  - No therapeutic response [None]
  - Disease progression [None]

NARRATIVE: CASE EVENT DATE: 20150915
